FAERS Safety Report 7315488-6 (Version None)
Quarter: 2011Q1

REPORT INFORMATION
  Report Type: 
  Country: None (occurrence: None)
  Receive Date: 20110119
  Receipt Date: 20100623
  Transmission Date: 20110831
  Serious: Yes (Hospitalization)
  Sender: FDA-Public Use
  Company Number: A-NJ2010-37595

PATIENT
  Age: 2 Year
  Sex: Female

DRUGS (5)
  1. VIAGRA [Concomitant]
  2. DIGOXIN [Concomitant]
  3. WARFARIN SODIUM [Concomitant]
  4. FERROUS SULFATE TAB [Concomitant]
  5. TRACLEER [Suspect]
     Indication: PULMONARY ARTERIAL HYPERTENSION
     Dosage: ORAL
     Route: 048
     Dates: start: 20100423

REACTIONS (2)
  - PLATELET COUNT DECREASED [None]
  - UPPER RESPIRATORY TRACT INFECTION [None]
